FAERS Safety Report 13008868 (Version 3)
Quarter: 2017Q1

REPORT INFORMATION
  Report Type: Report from Study
  Country: US (occurrence: US)
  Receive Date: 20161208
  Receipt Date: 20170203
  Transmission Date: 20170428
  Serious: Yes (Death)
  Sender: FDA-Public Use
  Company Number: US-BAXALTA-2016BLT008904

PATIENT
  Age: 27 Year
  Sex: Female
  Weight: 85.19 kg

DRUGS (12)
  1. VITAMIN B COMPLEX [Concomitant]
     Active Substance: CYANOCOBALAMIN\DEXPANTHENOL\NIACINAMIDE\PYRIDOXINE HYDROCHLORIDE\RIBOFLAVIN 5^-PHOSPHATE SODIUM\THIAMINE HYDROCHLORIDE\VITAMIN B COMPLEX
     Indication: DRUG-INDUCED LIVER INJURY
  2. ONCASPAR [Suspect]
     Active Substance: PEGASPARGASE
     Indication: B PRECURSOR TYPE ACUTE LEUKAEMIA
     Dosage: 3750 IU
     Route: 042
     Dates: start: 20161104, end: 20161104
  3. VINCRISTINE [Concomitant]
     Active Substance: VINCRISTINE
     Indication: B PRECURSOR TYPE ACUTE LEUKAEMIA
  4. RITUXIMAB [Concomitant]
     Active Substance: RITUXIMAB
     Indication: B PRECURSOR TYPE ACUTE LEUKAEMIA
  5. CYTARABINE. [Concomitant]
     Active Substance: CYTARABINE
     Indication: B PRECURSOR TYPE ACUTE LEUKAEMIA
  6. PREDNISONE. [Concomitant]
     Active Substance: PREDNISONE
     Indication: B PRECURSOR TYPE ACUTE LEUKAEMIA
  7. DASATINIB [Concomitant]
     Active Substance: DASATINIB
     Indication: B PRECURSOR TYPE ACUTE LEUKAEMIA
  8. THIAMINE. [Concomitant]
     Active Substance: THIAMINE
     Indication: DRUG-INDUCED LIVER INJURY
  9. CYCLOPHOSPHAMIDE. [Concomitant]
     Active Substance: CYCLOPHOSPHAMIDE
     Indication: B PRECURSOR TYPE ACUTE LEUKAEMIA
  10. LEVOCARNITINE. [Concomitant]
     Active Substance: LEVOCARNITINE
     Indication: DRUG-INDUCED LIVER INJURY
  11. NICOTINIC ACID [Concomitant]
     Active Substance: NIACIN
     Indication: DRUG-INDUCED LIVER INJURY
  12. DAUNORUBICIN [Concomitant]
     Active Substance: DAUNORUBICIN
     Indication: B PRECURSOR TYPE ACUTE LEUKAEMIA

REACTIONS (4)
  - Acute lymphocytic leukaemia [Fatal]
  - Enterococcal sepsis [Fatal]
  - Hepatic encephalopathy [Fatal]
  - Brain herniation [Fatal]

NARRATIVE: CASE EVENT DATE: 20161004
